FAERS Safety Report 5704181-9 (Version None)
Quarter: 2008Q2

REPORT INFORMATION
  Report Type: 
  Country: None (occurrence: None)
  Receive Date: 20080414
  Receipt Date: 20080401
  Transmission Date: 20081010
  Serious: Yes (Hospitalization)
  Sender: FDA-Public Use
  Company Number: FR-AVENTIS-200811175FR

PATIENT
  Age: 72 Year
  Sex: Female

DRUGS (24)
  1. PROPOFAN/FRANCE [Suspect]
     Route: 048
     Dates: start: 20080229, end: 20080303
  2. LOVENOX [Suspect]
     Route: 058
     Dates: start: 20080228, end: 20080306
  3. METOCLOPRAMIDE HCL [Suspect]
     Indication: NAUSEA
     Route: 048
     Dates: start: 20080229, end: 20080303
  4. NEURONTIN [Suspect]
     Indication: DRUG USE FOR UNKNOWN INDICATION
     Route: 048
     Dates: start: 20080301, end: 20080301
  5. NEURONTIN [Suspect]
     Route: 048
     Dates: start: 20080302, end: 20080303
  6. LYRICA [Suspect]
     Route: 048
     Dates: start: 20080221, end: 20080227
  7. LYRICA [Suspect]
     Route: 048
     Dates: start: 20080228, end: 20080228
  8. LYRICA [Suspect]
     Route: 048
     Dates: start: 20080229, end: 20080301
  9. PROFENID [Concomitant]
     Route: 048
     Dates: start: 20080221, end: 20080227
  10. TOPALGIC [Concomitant]
     Route: 048
     Dates: start: 20080228, end: 20080229
  11. KETOPROFEN [Concomitant]
     Route: 048
     Dates: start: 20080228, end: 20080306
  12. EZETROL [Concomitant]
     Indication: DRUG USE FOR UNKNOWN INDICATION
     Route: 048
     Dates: end: 20080306
  13. TEMESTA                            /00273201/ [Concomitant]
     Indication: DRUG USE FOR UNKNOWN INDICATION
     Route: 048
  14. PRACTAZIN [Concomitant]
     Indication: DRUG USE FOR UNKNOWN INDICATION
     Route: 048
  15. ZOPHREN                            /00955301/ [Concomitant]
     Indication: NAUSEA
     Dates: start: 20080229, end: 20080301
  16. FORLAX [Concomitant]
     Indication: CONSTIPATION
     Route: 048
     Dates: start: 20080229, end: 20080301
  17. DURAGESIC-100 [Concomitant]
     Indication: CANCER PAIN
     Route: 062
     Dates: start: 20080302, end: 20080302
  18. DURAGESIC-100 [Concomitant]
     Route: 062
     Dates: start: 20080303, end: 20080303
  19. DURAGESIC-100 [Concomitant]
     Route: 062
     Dates: start: 20080304, end: 20080305
  20. NARCAN [Concomitant]
     Indication: DRUG USE FOR UNKNOWN INDICATION
     Route: 042
     Dates: start: 20080305, end: 20080301
  21. SOLU-MEDROL [Concomitant]
     Indication: DRUG USE FOR UNKNOWN INDICATION
     Dates: start: 20080305, end: 20080306
  22. AUGMENTIN '125' [Concomitant]
     Indication: DRUG USE FOR UNKNOWN INDICATION
     Dates: start: 20080305, end: 20080306
  23. OXYCODONE HCL [Concomitant]
     Dates: start: 20080306
  24. NEXIUM [Concomitant]
     Route: 048
     Dates: start: 20080306, end: 20080306

REACTIONS (5)
  - ALANINE AMINOTRANSFERASE INCREASED [None]
  - ASPARTATE AMINOTRANSFERASE INCREASED [None]
  - CYTOLYTIC HEPATITIS [None]
  - GAMMA-GLUTAMYLTRANSFERASE INCREASED [None]
  - HEPATOCELLULAR INJURY [None]
